FAERS Safety Report 5146636-4 (Version None)
Quarter: 2006Q4

REPORT INFORMATION
  Report Type: 
  Country: None (occurrence: None)
  Receive Date: 20061107
  Receipt Date: 20061107
  Transmission Date: 20070319
  Serious: Yes (Death)
  Sender: FDA-Public Use
  Company Number: None

PATIENT
  Sex: Male

DRUGS (4)
  1. CETUXIMAB [Suspect]
     Indication: NEOPLASM MALIGNANT
     Dosage: 410MG, WEEKLY, IV
     Route: 042
     Dates: start: 20060428, end: 20061016
  2. PACLITAXEL [Suspect]
     Indication: NEOPLASM MALIGNANT
     Dosage: 66.5 MG 8 WEEKS, IV
     Route: 042
     Dates: start: 20060530, end: 20060717
  3. CARBOPLATIN [Suspect]
     Indication: NEOPLASM MALIGNANT
     Dosage: 80 MG,*8 WEEKS, IV
     Route: 042
     Dates: start: 20060530, end: 20060717
  4. RADIATION [Suspect]
     Indication: NEOPLASM MALIGNANT
     Dosage: 4500CGY AT 180CGH, DAILY
     Dates: start: 20060530, end: 20060720

REACTIONS (12)
  - CLOSTRIDIAL INFECTION [None]
  - FEEDING TUBE COMPLICATION [None]
  - HYPOTENSION [None]
  - IMPLANT SITE EROSION [None]
  - MYOCARDIAL INFARCTION [None]
  - NOSOCOMIAL INFECTION [None]
  - PERITONITIS [None]
  - PNEUMONIA [None]
  - PNEUMOPERITONEUM [None]
  - PULMONARY CAVITATION [None]
  - RESPIRATORY FAILURE [None]
  - SEPSIS [None]
